FAERS Safety Report 8275813-9 (Version None)
Quarter: 2012Q2

REPORT INFORMATION
  Report Type: 
  Country: None (occurrence: None)
  Receive Date: 20120410
  Receipt Date: 20120410
  Transmission Date: 20120825
  Serious: No
  Sender: FDA-Public Use
  Company Number: None

PATIENT
  Age: 31 Year
  Sex: Female
  Weight: 89.8122 kg

DRUGS (2)
  1. TYSABRI [Suspect]
     Dosage: 300MG QAW IVSS
     Route: 042
     Dates: start: 20120405
  2. NS [Concomitant]

REACTIONS (4)
  - INFUSION RELATED REACTION [None]
  - CHEST DISCOMFORT [None]
  - ABDOMINAL PAIN UPPER [None]
  - NAUSEA [None]
